FAERS Safety Report 5716958-4 (Version None)
Quarter: 2008Q2

REPORT INFORMATION
  Report Type: 
  Country: None (occurrence: None)
  Receive Date: 20080424
  Receipt Date: 20080421
  Transmission Date: 20081010
  Serious: Yes (Other)
  Sender: FDA-Public Use
  Company Number: US-MERCK-0804USA03614

PATIENT
  Age: 56 Year
  Sex: Male

DRUGS (3)
  1. SINGULAIR [Suspect]
     Indication: ASTHMA
     Route: 048
     Dates: start: 20060927, end: 20070101
  2. [THERAPY UNSPECIFIED] [Concomitant]
     Route: 065
  3. KLONOPIN [Concomitant]
     Route: 065
     Dates: start: 20061001

REACTIONS (2)
  - DEPRESSION [None]
  - SUICIDAL IDEATION [None]
